FAERS Safety Report 5627562-0 (Version None)
Quarter: 2008Q1

REPORT INFORMATION
  Report Type: 
  Country: None (occurrence: None)
  Receive Date: 20080215
  Receipt Date: 20080107
  Transmission Date: 20080703
  Serious: No
  Sender: FDA-Public Use
  Company Number: A0701689A

PATIENT
  Age: 63 Year
  Sex: Male

DRUGS (6)
  1. COREG CR [Suspect]
     Indication: HYPERTENSION
     Dosage: 40MG PER DAY
     Route: 048
  2. TEVETEN [Concomitant]
  3. LIPITOR [Concomitant]
  4. PAXIL CR [Concomitant]
  5. PROTONIX [Concomitant]
  6. ANDROGEL [Concomitant]

REACTIONS (1)
  - VENTRICULAR EXTRASYSTOLES [None]
